FAERS Safety Report 17272154 (Version 2)
Quarter: 2020Q1

REPORT INFORMATION
  Report Type: Spontaneous
  Country: US (occurrence: US)
  Receive Date: 20200115
  Receipt Date: 20200306
  Transmission Date: 20200409
  Serious: Yes (Other)
  Sender: FDA-Public Use
  Company Number: US-PFIZER INC-2020018589

PATIENT
  Age: 75 Year
  Sex: Female

DRUGS (1)
  1. INLYTA [Suspect]
     Active Substance: AXITINIB
     Indication: RENAL CANCER
     Dosage: 1 MG, UNK

REACTIONS (6)
  - Vomiting [Unknown]
  - Second primary malignancy [Unknown]
  - Malaise [Unknown]
  - Neoplasm progression [Unknown]
  - Invasive ductal breast carcinoma [Unknown]
  - Asthenia [Unknown]
